FAERS Safety Report 8389260 (Version 2)
Quarter: 2012Q4

REPORT INFORMATION
  Report Type: 
  Country: US (occurrence: US)
  Receive Date: 20120203
  Receipt Date: 20121022
  Transmission Date: 20130627
  Serious: Yes (Hospitalization)
  Sender: FDA-Public Use
  Company Number: US-BAYER-2012-010646

PATIENT
  Age: 20 Year
  Sex: Female
  Weight: 108.84 kg

DRUGS (5)
  1. YASMIN [Suspect]
     Dosage: UNK
     Dates: start: 2004, end: 20060920
  2. OCELLA [Suspect]
     Dosage: UNK
     Dates: start: 2004, end: 20060920
  3. VITAMIN C [Concomitant]
     Dosage: UNK UNK, QD
  4. MOTRIN [Concomitant]
     Indication: HEADACHE
     Dosage: UNK UNK, PRN
  5. AMOXICILLIN [Concomitant]

REACTIONS (8)
  - Cholelithiasis [None]
  - Injury [None]
  - Emotional distress [None]
  - Abdominal pain upper [None]
  - Nausea [None]
  - Vomiting [None]
  - Anxiety [None]
  - Quality of life decreased [None]
